FAERS Safety Report 8284563-4 (Version None)
Quarter: 2012Q2

REPORT INFORMATION
  Report Type: 
  Country: None (occurrence: None)
  Receive Date: 20120413
  Receipt Date: 20110804
  Transmission Date: 20120825
  Serious: No
  Sender: FDA-Public Use
  Company Number: US-ASTRAZENECA-2011SE46762

PATIENT
  Sex: Female

DRUGS (2)
  1. NEXIUM [Suspect]
     Route: 048
  2. LEXAPRO [Concomitant]

REACTIONS (3)
  - RESTLESSNESS [None]
  - ANXIETY [None]
  - MENTAL DISORDER [None]
